FAERS Safety Report 15056315 (Version 1)
Quarter: 2018Q2

REPORT INFORMATION
  Report Type: Report from Study
  Country: US (occurrence: US)
  Receive Date: 20180622
  Receipt Date: 20180622
  Transmission Date: 20180711
  Serious: No
  Sender: FDA-Public Use
  Company Number: US-AMGEN-USASL2015125558

PATIENT
  Age: 67 Year
  Sex: Female

DRUGS (1)
  1. SENSIPAR [Suspect]
     Active Substance: CINACALCET HYDROCHLORIDE
     Indication: THYROID DISORDER
     Dosage: 60 MG, QOD
     Route: 048
     Dates: start: 20151015, end: 20151122

REACTIONS (16)
  - Blood count abnormal [Unknown]
  - Gastrooesophageal reflux disease [Unknown]
  - Sleep disorder [Unknown]
  - Fatigue [Unknown]
  - Dizziness [Unknown]
  - Malaise [Unknown]
  - Abdominal discomfort [Unknown]
  - Drug ineffective [Unknown]
  - Crying [Unknown]
  - Blood calcium increased [Unknown]
  - Urine calcium increased [Unknown]
  - Gastrointestinal disorder [Unknown]
  - Dyspepsia [Unknown]
  - Throat irritation [Unknown]
  - Memory impairment [Unknown]
  - Surgery [Unknown]

NARRATIVE: CASE EVENT DATE: 2015
